FAERS Safety Report 5154225-0 (Version None)
Quarter: 2006Q4

REPORT INFORMATION
  Report Type: 
  Country: None (occurrence: None)
  Receive Date: 20061114
  Receipt Date: 20061030
  Transmission Date: 20070319
  Serious: Yes (Hospitalization)
  Sender: FDA-Public Use
  Company Number: GXKR2006JP05593

PATIENT
  Sex: Male

DRUGS (1)
  1. RIMACTANE [Suspect]
     Indication: TUBERCULOSIS
     Dosage: ORAL
     Route: 048

REACTIONS (1)
  - URINARY RETENTION [None]
